FAERS Safety Report 10364189 (Version 14)
Quarter: 2015Q1

REPORT INFORMATION
  Report Type: Report from Study
  Country: SI (occurrence: SI)
  Receive Date: 20140806
  Receipt Date: 20150324
  Transmission Date: 20150720
  Serious: Yes (Death, Life-Threatening, Hospitalization)
  Sender: FDA-Public Use
  Company Number: SI-ROCHE-1444778

PATIENT
  Age: 62 Year
  Sex: Male
  Weight: 88 kg

DRUGS (32)
  1. OBINUTUZUMAB [Suspect]
     Active Substance: OBINUTUZUMAB
     Indication: CHRONIC LYMPHOCYTIC LEUKAEMIA
     Dosage: C1D1.
     Route: 042
     Dates: start: 20140721, end: 20140721
  2. METHYLPREDNISOLON [Concomitant]
     Active Substance: METHYLPREDNISOLONE
     Indication: PROPHYLAXIS
     Route: 042
     Dates: start: 20140721, end: 20140721
  3. METAMIZOL [Concomitant]
     Active Substance: METAMIZOLE SODIUM
     Route: 042
     Dates: start: 20140730, end: 20140808
  4. FUROSEMID [Concomitant]
     Active Substance: FUROSEMIDE
     Route: 048
     Dates: start: 20140805, end: 20140805
  5. ERYTHROCYTE TRANSFUSIONS [Concomitant]
     Route: 042
     Dates: start: 20140801, end: 20140801
  6. THROMBOCYTE TRANSFUSION [Concomitant]
     Route: 042
     Dates: start: 20140730, end: 20140730
  7. OBINUTUZUMAB [Suspect]
     Active Substance: OBINUTUZUMAB
     Dosage: C1D2
     Route: 042
     Dates: start: 20140722, end: 20140722
  8. ERYTHROCYTE TRANSFUSIONS [Concomitant]
     Route: 042
     Dates: start: 20140806, end: 20140806
  9. THROMBOCYTE TRANSFUSION [Concomitant]
     Route: 042
     Dates: start: 20140805, end: 20140805
  10. BENDAMUSTINE [Suspect]
     Active Substance: BENDAMUSTINE
     Dosage: C1D1.?ON 22/JUL/2014, HE RECEIVED THE LAST DOSE PRIOR TO ONSET OF SERIOUS ADVERSE EVENT.
     Route: 042
     Dates: start: 20140722, end: 20140722
  11. CASPOFUNGIN [Suspect]
     Active Substance: CASPOFUNGIN
     Indication: BRONCHOPULMONARY ASPERGILLOSIS
     Route: 042
     Dates: start: 20140805, end: 20140808
  12. BENDAMUSTINE [Suspect]
     Active Substance: BENDAMUSTINE
     Route: 042
     Dates: end: 20140728
  13. PIPERACILLIN/TAZOBACTAM [Suspect]
     Active Substance: PIPERACILLIN SODIUM\TAZOBACTAM SODIUM
     Indication: FEBRILE NEUTROPENIA
     Dosage: TOTAL DAILY DOSE-13.5 G
     Route: 042
     Dates: start: 20140730, end: 20140807
  14. BROMAZEPAM [Concomitant]
     Active Substance: BROMAZEPAM
     Dosage: TOTAL DAILY DOSE-1.5 MG
     Route: 048
     Dates: start: 2013, end: 20140707
  15. THROMBOCYTE TRANSFUSION [Concomitant]
     Route: 042
     Dates: start: 20140806, end: 20140806
  16. LORATADIN [Concomitant]
     Active Substance: LORATADINE
     Route: 048
     Dates: start: 20140728, end: 20140728
  17. THROMBOCYTE TRANSFUSION [Concomitant]
     Route: 042
     Dates: start: 20140801, end: 20140801
  18. VALSARTAN. [Concomitant]
     Active Substance: VALSARTAN
     Dosage: TOTAL DAILY DOSE-160 MG
     Route: 048
     Dates: start: 20090516, end: 20140729
  19. HYDROKLORTIAZID [Concomitant]
     Dosage: TOTAL DAILY DOSE-25 MG
     Route: 048
     Dates: start: 20090516, end: 20140729
  20. METHYLPREDNISOLON [Concomitant]
     Active Substance: METHYLPREDNISOLONE
     Route: 042
     Dates: start: 20140728, end: 20140728
  21. LEVOFLOXACIN. [Concomitant]
     Active Substance: LEVOFLOXACIN
     Indication: PROPHYLAXIS
     Route: 048
     Dates: start: 20140728, end: 20140729
  22. METAMIZOL [Concomitant]
     Active Substance: METAMIZOLE SODIUM
     Route: 042
     Dates: start: 20140721, end: 20140721
  23. ERYTHROCYTE TRANSFUSIONS [Concomitant]
     Route: 042
     Dates: start: 20140730, end: 20140730
  24. OBINUTUZUMAB [Suspect]
     Active Substance: OBINUTUZUMAB
     Dosage: C1D8.?ON 28/JUL/2014, HE RECEIVED THE LAST DOSE PRIOR TO ONSET OF SERIOUS ADVERSE EVENT.
     Route: 042
     Dates: start: 20140728, end: 20140728
  25. IMIPENEM [Suspect]
     Active Substance: IMIPENEM
     Indication: BRONCHOPULMONARY ASPERGILLOSIS
     Route: 065
     Dates: start: 20140807, end: 20140808
  26. METHYLPREDNISOLON [Concomitant]
     Active Substance: METHYLPREDNISOLONE
     Route: 042
     Dates: start: 20140722, end: 20140722
  27. LORATADIN [Concomitant]
     Active Substance: LORATADINE
     Indication: PROPHYLAXIS
     Route: 048
     Dates: start: 20140721, end: 20140722
  28. ERYTHROCYTE TRANSFUSIONS [Concomitant]
     Route: 042
     Dates: start: 20140721, end: 20140721
  29. ERYTHROCYTE TRANSFUSIONS [Concomitant]
     Route: 042
     Dates: start: 20140722, end: 20140722
  30. BENDAMUSTINE [Suspect]
     Active Substance: BENDAMUSTINE
     Indication: CHRONIC LYMPHOCYTIC LEUKAEMIA
     Dosage: C1D1
     Route: 042
     Dates: start: 20140721, end: 20140721
  31. DEXAMETHASONE. [Concomitant]
     Active Substance: DEXAMETHASONE
     Indication: PROPHYLAXIS
     Route: 042
     Dates: start: 20140721, end: 20140721
  32. TIETILPERAZINA [Concomitant]
     Route: 042
     Dates: start: 20140721, end: 20140721

REACTIONS (3)
  - Hepatic failure [Not Recovered/Not Resolved]
  - Febrile neutropenia [Not Recovered/Not Resolved]
  - Bronchopulmonary aspergillosis [Fatal]

NARRATIVE: CASE EVENT DATE: 20140722
